FAERS Safety Report 6898363-0 (Version None)
Quarter: 2010Q3

REPORT INFORMATION
  Report Type: 
  Country: None (occurrence: None)
  Receive Date: 20100802
  Receipt Date: 20071011
  Transmission Date: 20110219
  Serious: No
  Sender: FDA-Public Use
  Company Number: US-PFIZER INC-2007085691

PATIENT
  Sex: Female
  Weight: 109.1 kg

DRUGS (2)
  1. LYRICA [Suspect]
     Indication: NEURALGIA
     Dates: start: 20071006, end: 20071011
  2. HYOSCYAMINE [Concomitant]

REACTIONS (1)
  - HYPERSENSITIVITY [None]
